FAERS Safety Report 10552462 (Version 3)
Quarter: 2015Q2

REPORT INFORMATION
  Report Type: Report from Study
  Country: US (occurrence: US)
  Receive Date: 20141029
  Receipt Date: 20150422
  Transmission Date: 20150821
  Serious: No
  Sender: FDA-Public Use
  Company Number: US-AMGEN INC.-USASL2014082504

PATIENT
  Age: 50 Year
  Sex: Female

DRUGS (1)
  1. ENBREL [Suspect]
     Active Substance: ETANERCEPT
     Indication: RHEUMATOID ARTHRITIS
     Dosage: 50 MG, QWK
     Route: 065
     Dates: start: 20141010

REACTIONS (9)
  - Dizziness [Not Recovered/Not Resolved]
  - Migraine [Unknown]
  - Hyperhidrosis [Recovered/Resolved]
  - Injection site erythema [Recovered/Resolved]
  - Burning sensation [Recovered/Resolved]
  - Weight increased [Not Recovered/Not Resolved]
  - Injection site induration [Recovered/Resolved]
  - Hot flush [Recovered/Resolved]
  - Injection site swelling [Recovered/Resolved]

NARRATIVE: CASE EVENT DATE: 2014
